FAERS Safety Report 5655374-0 (Version None)
Quarter: 2008Q1

REPORT INFORMATION
  Report Type: 
  Country: None (occurrence: None)
  Receive Date: 20080307
  Receipt Date: 20080305
  Transmission Date: 20080703
  Serious: Yes (Other)
  Sender: FDA-Public Use
  Company Number: IE-MERCK-0803GBR00017

PATIENT
  Age: 80 Year
  Sex: Female

DRUGS (5)
  1. FOSAMAX [Suspect]
     Indication: OSTEOPOROSIS
     Route: 048
  2. FLUTICASONE PROPIONATE [Concomitant]
     Route: 065
  3. CALCIUM CARBONATE [Concomitant]
     Route: 065
  4. GLUCOSAMINE SULFATE [Concomitant]
     Route: 065
  5. CROMOLYN SODIUM [Concomitant]
     Route: 065

REACTIONS (1)
  - HAEMATEMESIS [None]
